FAERS Safety Report 6998320-X (Version None)
Quarter: 2010Q3

REPORT INFORMATION
  Report Type: 
  Country: None (occurrence: None)
  Receive Date: 20100920
  Receipt Date: 20100914
  Transmission Date: 20110219
  Serious: Yes (Hospitalization)
  Sender: FDA-Public Use
  Company Number: CN-GENZYME-CERZ-1001507

PATIENT

DRUGS (2)
  1. CEREZYME [Suspect]
     Indication: GAUCHER'S DISEASE
     Dosage: 800 U, Q4W
     Route: 042
     Dates: start: 20100401
  2. CEREZYME [Suspect]
     Dosage: 2000 U, Q4W
     Route: 042
     Dates: start: 20000301, end: 20100401

REACTIONS (2)
  - FALL [None]
  - PAIN IN EXTREMITY [None]
